FAERS Safety Report 8613626-6 (Version None)
Quarter: 2012Q3

REPORT INFORMATION
  Report Type: 
  Country: None (occurrence: None)
  Receive Date: 20120823
  Receipt Date: 20120809
  Transmission Date: 20120928
  Serious: Yes (Hospitalization, Other)
  Sender: FDA-Public Use
  Company Number: US-009507513-2011SP042221

PATIENT

DRUGS (3)
  1. NUVARING [Suspect]
     Indication: CONTRACEPTION
     Dates: start: 20090811, end: 20090907
  2. ACTIGALL [Concomitant]
     Dosage: 600 MG, BID
     Route: 048
  3. ASACOL [Concomitant]
     Dosage: 2400 MG, BID
     Route: 048

REACTIONS (21)
  - CHEST PAIN [None]
  - MITRAL VALVE INCOMPETENCE [None]
  - HERPES SIMPLEX [None]
  - BACK PAIN [None]
  - FLUSHING [None]
  - HEADACHE [None]
  - PULMONARY EMBOLISM [None]
  - NIGHT SWEATS [None]
  - AORTIC ARTERIOSCLEROSIS [None]
  - COLITIS ULCERATIVE [None]
  - DIZZINESS [None]
  - HYPERCOAGULATION [None]
  - DYSPNOEA [None]
  - URINARY TRACT INFECTION [None]
  - DILATATION VENTRICULAR [None]
  - FEELING COLD [None]
  - GASTROENTERITIS [None]
  - HAEMATOCHEZIA [None]
  - ANAEMIA [None]
  - ASTHMA [None]
  - STRESS [None]
